FAERS Safety Report 8929228 (Version 1)
Quarter: 2012Q4

REPORT INFORMATION
  Report Type: Spontaneous
  Country: GR (occurrence: None)
  Receive Date: 20121120
  Receipt Date: 20121120
  Transmission Date: 20130627
  Serious: Yes (Other)
  Sender: FDA-Public Use
  Company Number: 2012P1064987

PATIENT
  Age: 74 Year
  Sex: Female

DRUGS (1)
  1. DONEPEZIL [Suspect]
     Indication: ALZHEIMER^S DISEASE

REACTIONS (2)
  - Pleurothotonus [None]
  - Drug interaction [None]
